FAERS Safety Report 5239195-9 (Version None)
Quarter: 2007Q1

REPORT INFORMATION
  Report Type: 
  Country: None (occurrence: None)
  Receive Date: 20061208
  Receipt Date: 20050915
  Transmission Date: 20070707
  Serious: Yes (Other)
  Sender: FDA-Public Use
  Company Number: 2005UW13722

PATIENT
  Age: 68 Year
  Sex: Male
  Weight: 83.914 kg

DRUGS (11)
  1. CRESTOR [Suspect]
     Indication: BLOOD CHOLESTEROL INCREASED
     Dosage: 10 MG DAILY PO
     Route: 048
     Dates: start: 20030101
  2. CELEBREX [Concomitant]
  3. AVODART [Concomitant]
  4. ENALAPRIL MALEATE [Concomitant]
  5. TERAZOSIN HCL [Concomitant]
  6. BISOPROLOL [Concomitant]
  7. ASCORBIC ACID [Concomitant]
  8. CENTRUM [Concomitant]
  9. SAW PALMETTO [Concomitant]
  10. LUMIGAN [Concomitant]
  11. ATROVENT [Concomitant]

REACTIONS (3)
  - ASTHENIA [None]
  - GAIT DISTURBANCE [None]
  - PAIN IN EXTREMITY [None]
